FAERS Safety Report 24392722 (Version 3)
Quarter: 2024Q4

REPORT INFORMATION
  Report Type: Spontaneous
  Country: US (occurrence: US)
  Receive Date: 20241003
  Receipt Date: 20241107
  Transmission Date: 20250115
  Serious: Yes (Other)
  Sender: ORGANON
  Company Number: US-ORGANON-O2410USA000007

PATIENT
  Age: 20 Year
  Sex: Female
  Weight: 100 kg

DRUGS (4)
  1. NEXPLANON [Suspect]
     Active Substance: ETONOGESTREL
     Indication: Contraception
     Dosage: 1 IMPLANT, LEFT ARM
     Route: 059
     Dates: start: 20240910, end: 20240926
  2. NEXPLANON [Suspect]
     Active Substance: ETONOGESTREL
     Indication: Dysmenorrhoea
  3. NEXPLANON [Suspect]
     Active Substance: ETONOGESTREL
     Indication: Contraception
     Dosage: 1 IMPLANT, RIGHT UPPE ARM (PATIENT^S DOMINANT ARM)
     Route: 059
     Dates: start: 20240926, end: 20240927
  4. NEXPLANON [Suspect]
     Active Substance: ETONOGESTREL
     Indication: Dysmenorrhoea

REACTIONS (8)
  - Device expulsion [Recovered/Resolved]
  - Insomnia [Recovering/Resolving]
  - Neuralgia [Recovered/Resolved]
  - Device placement issue [Recovered/Resolved]
  - Device placement issue [Recovered/Resolved]
  - Medical device site discomfort [Unknown]
  - Product use in unapproved indication [Unknown]
  - Product use in unapproved indication [Unknown]

NARRATIVE: CASE EVENT DATE: 20240901
